FAERS Safety Report 15202002 (Version 1)
Quarter: 2018Q3

REPORT INFORMATION
  Report Type: Spontaneous
  Country: BR (occurrence: BR)
  Receive Date: 20180726
  Receipt Date: 20180726
  Transmission Date: 20181010
  Serious: Yes (Other)
  Sender: FDA-Public Use
  Company Number: BR-SA-2018SA194493

PATIENT
  Sex: Male

DRUGS (1)
  1. DULCOLAX NOS [Suspect]
     Active Substance: BISACODYL OR DOCUSATE SODIUM
     Dosage: UNK
     Route: 065
     Dates: start: 20180712

REACTIONS (7)
  - Drug ineffective [Unknown]
  - General physical health deterioration [Unknown]
  - Hospitalisation [Unknown]
  - Dehydration [Unknown]
  - Medication error [Unknown]
  - Influenza [Unknown]
  - Overdose [Unknown]
